FAERS Safety Report 9024611 (Version 3)
Quarter: 2013Q3

REPORT INFORMATION
  Report Type: Spontaneous
  Country: US (occurrence: None)
  Receive Date: 20121231
  Receipt Date: 20130916
  Transmission Date: 20140515
  Serious: Yes (Hospitalization)
  Sender: FDA-Public Use
  Company Number: JPI-P-027930

PATIENT
  Age: 33 Year
  Sex: Female
  Weight: 90.72 kg

DRUGS (4)
  1. XYREM (500 MILLIGRAM/MILLILITERS, SOLUTION) (SODIUM OXYBATE) [Suspect]
     Indication: SOMNOLENCE
     Dosage: 4.5 GM (2.25 GM, 2 IN 1 D), ORAL
     Route: 048
     Dates: start: 20100113
  2. XYREM (500 MILLIGRAM/MILLILITERS, SOLUTION) (SODIUM OXYBATE) [Suspect]
     Indication: NARCOLEPSY
     Dosage: 4.5 GM (2.25 GM, 2 IN 1 D), ORAL
     Route: 048
     Dates: start: 20100113
  3. ALPRAZOLAM (TABLETS) [Suspect]
     Indication: WITHDRAWAL SYNDROME
     Dosage: 0.5 MG, 6 TO 20 TABLETS PER DAY
     Dates: start: 201206, end: 201211
  4. ARMODAFINIL [Concomitant]

REACTIONS (18)
  - Self-medication [None]
  - Drug dependence [None]
  - Intentional drug misuse [None]
  - Inappropriate schedule of drug administration [None]
  - Initial insomnia [None]
  - Poor quality sleep [None]
  - Drug withdrawal syndrome [None]
  - Paraesthesia [None]
  - Headache [None]
  - Feeling abnormal [None]
  - Restlessness [None]
  - Fatigue [None]
  - Lethargy [None]
  - Disturbance in attention [None]
  - Hyperacusis [None]
  - Psychomotor hyperactivity [None]
  - Drug ineffective [None]
  - Drug dependence [None]
